FAERS Safety Report 8179201-5 (Version None)
Quarter: 2012Q1

REPORT INFORMATION
  Report Type: 
  Country: None (occurrence: None)
  Receive Date: 20120227
  Receipt Date: 20120217
  Transmission Date: 20120608
  Serious: Yes (Hospitalization)
  Sender: FDA-Public Use
  Company Number: AUR-APL-2012-01001

PATIENT
  Age: 89 Year
  Sex: Female

DRUGS (6)
  1. DESLORATADINE (DESLORATADINE) [Concomitant]
  2. RAMIPRIL [Suspect]
     Indication: HYPERTENSION
     Dosage: (1.25 MG), ORAL
     Route: 048
     Dates: start: 20111230, end: 20120118
  3. CITALOPRAM HYDROBROMIDE [Suspect]
     Indication: DEPRESSION
     Dosage: (20 MG), ORAL
     Route: 048
     Dates: start: 20120116, end: 20120118
  4. ASPIRIN [Concomitant]
  5. FUROSEMIDE [Concomitant]
  6. BETACAROTENE (BETACAROTENE) [Concomitant]

REACTIONS (2)
  - VIITH NERVE PARALYSIS [None]
  - CEREBROVASCULAR ACCIDENT [None]
